FAERS Safety Report 4284496-4 (Version None)
Quarter: 2004Q1

REPORT INFORMATION
  Report Type: 
  Country: None (occurrence: None)
  Receive Date: 20040130
  Receipt Date: 20040113
  Transmission Date: 20041129
  Serious: Yes (Death, Other)
  Sender: FDA-Public Use
  Company Number: B0319815A

PATIENT

DRUGS (1)
  1. HYCAMTIN [Suspect]
     Indication: MYELODYSPLASTIC SYNDROME
     Dosage: VARIABLE DOSE/ INTRAVENOUS
     Route: 042

REACTIONS (2)
  - ACUTE MYELOID LEUKAEMIA [None]
  - PANCYTOPENIA [None]
